FAERS Safety Report 8340134-2 (Version None)
Quarter: 2012Q2

REPORT INFORMATION
  Report Type: 
  Country: None (occurrence: None)
  Receive Date: 20120502
  Receipt Date: 20120502
  Transmission Date: 20120825
  Serious: Yes (Other)
  Sender: FDA-Public Use
  Company Number: None

PATIENT
  Age: 49 Year
  Sex: Female
  Weight: 71.2147 kg

DRUGS (2)
  1. PEGASYS [Suspect]
     Indication: HEPATITIS C
     Dosage: PEGASYS-SUBCUTANEOUS WEEKLY
     Route: 058
     Dates: start: 20110801, end: 20120405
  2. RIBASPHERE [Suspect]
     Dosage: 600MG ORALLY TWICE DAILY
     Route: 048

REACTIONS (3)
  - HEADACHE [None]
  - VOMITING [None]
  - WEIGHT DECREASED [None]
